FAERS Safety Report 10094200 (Version 1)
Quarter: 2014Q2

REPORT INFORMATION
  Report Type: Spontaneous
  Country: US (occurrence: None)
  Receive Date: 20140421
  Receipt Date: 20140421
  Transmission Date: 20141212
  Serious: Yes (Hospitalization)
  Sender: FDA-Public Use
  Company Number: None

PATIENT
  Age: 24 Year
  Sex: Female
  Weight: 75.3 kg

DRUGS (1)
  1. AUGMENTIN [Suspect]
     Dosage: 1 PILL, TWICE DAILY, TAKEN BY MOUTH
     Dates: start: 20140331, end: 20140409

REACTIONS (7)
  - Fungal infection [None]
  - Urticaria [None]
  - Rash [None]
  - Pruritus [None]
  - Irritability [None]
  - Pyrexia [None]
  - Activities of daily living impaired [None]
